FAERS Safety Report 5206148-6 (Version None)
Quarter: 2006Q4

REPORT INFORMATION
  Report Type: 
  Country: None (occurrence: None)
  Receive Date: 20061026
  Receipt Date: 20060914
  Transmission Date: 20070319
  Serious: No
  Sender: FDA-Public Use
  Company Number: 2006112921

PATIENT
  Age: 71 Year
  Sex: Male
  Weight: 71.2147 kg

DRUGS (9)
  1. LYRICA [Suspect]
     Indication: DIABETIC NEUROPATHY
     Dosage: 100 MG (50 MG, 2 IN 1 D)
     Dates: start: 20060907
  2. CYMBALTA [Suspect]
     Dates: start: 20060907, end: 20060913
  3. DARVOCET (DEXTROPROPOXYPHENE NAPSILATE) [Concomitant]
  4. TEGRETOL [Concomitant]
  5. VALSARTAN [Concomitant]
  6. NORVASC [Concomitant]
  7. LIPITOR [Concomitant]
  8. PLAVIX [Concomitant]
  9. DRUG, UNSPECIFIED (DRUG, UNSPECIFIED) [Concomitant]

REACTIONS (2)
  - BLOOD GLUCOSE INCREASED [None]
  - BLOOD PRESSURE INCREASED [None]
